FAERS Safety Report 24185426 (Version 1)
Quarter: 2024Q3

REPORT INFORMATION
  Report Type: Spontaneous
  Country: AU (occurrence: AU)
  Receive Date: 20240807
  Receipt Date: 20240807
  Transmission Date: 20241017
  Serious: Yes (Other)
  Sender: PERRIGO
  Company Number: None

PATIENT
  Age: 10 Year
  Sex: Female

DRUGS (39)
  1. IBUPROFEN [Suspect]
     Active Substance: IBUPROFEN
     Indication: Headache
     Dosage: UNK
     Route: 065
  2. ACETAMINOPHEN [Suspect]
     Active Substance: ACETAMINOPHEN
     Indication: Headache
     Dosage: UNK
     Route: 065
  3. HUMAN IMMUNOGLOBULIN G [Concomitant]
     Active Substance: HUMAN IMMUNOGLOBULIN G
     Indication: Encephalitis
     Dosage: UNK
     Route: 042
     Dates: start: 2021
  4. HUMAN IMMUNOGLOBULIN G [Concomitant]
     Active Substance: HUMAN IMMUNOGLOBULIN G
     Indication: Immunosuppressant drug therapy
     Dosage: UNK
     Dates: start: 2021
  5. HUMAN IMMUNOGLOBULIN G [Concomitant]
     Active Substance: HUMAN IMMUNOGLOBULIN G
     Dosage: UNK
     Dates: start: 202104
  6. AMANTADINE HYDROCHLORIDE [Suspect]
     Active Substance: AMANTADINE HYDROCHLORIDE
     Indication: Encephalitis autoimmune
     Dosage: 25 MG, BID
     Route: 065
  7. AMANTADINE HYDROCHLORIDE [Suspect]
     Active Substance: AMANTADINE HYDROCHLORIDE
     Dosage: 50 MG 9INTERVAL: 1 DAY)
     Route: 065
     Dates: start: 20210528
  8. QUETIAPINE FUMARATE [Suspect]
     Active Substance: QUETIAPINE FUMARATE
     Indication: Conversion disorder
     Dosage: 50 MG, QID (DOSE: 200 MILLIGRAM; INTERVAL: 1 DAY)
     Route: 065
  9. QUETIAPINE FUMARATE [Suspect]
     Active Substance: QUETIAPINE FUMARATE
     Indication: Seizure
     Dosage: 12.5 MG (INTERVAL: 1 DAY)
     Route: 065
  10. QUETIAPINE FUMARATE [Suspect]
     Active Substance: QUETIAPINE FUMARATE
     Indication: Panic attack
     Dosage: 50 MG, TID (DOSE: 150 MILLIGRAM; INTERVAL: 1 DAY)
     Route: 065
  11. QUETIAPINE FUMARATE [Suspect]
     Active Substance: QUETIAPINE FUMARATE
     Dosage: UNK (50-100 MG)
     Route: 065
  12. QUETIAPINE FUMARATE [Suspect]
     Active Substance: QUETIAPINE FUMARATE
     Dosage: 6.25 MG, TID (DOSE: 18.75 MILLIGRAM; INTERVAL: 1 DAY)
     Route: 065
  13. QUETIAPINE FUMARATE [Suspect]
     Active Substance: QUETIAPINE FUMARATE
     Dosage: 6.25 MG, PRN (AS REQUIRED EVERY SIX HOURS)
     Route: 065
     Dates: start: 2021
  14. OLANZAPINE [Suspect]
     Active Substance: OLANZAPINE
     Indication: Conversion disorder
     Dosage: 2.5 MG
     Route: 065
  15. OLANZAPINE [Suspect]
     Active Substance: OLANZAPINE
     Dosage: 2.5 MG, BID (5 MILLIGRAM; INTERVAL: 1 DAY)
     Route: 065
  16. OLANZAPINE [Suspect]
     Active Substance: OLANZAPINE
     Dosage: 0.5 MG, PRN
     Route: 065
  17. DIAZEPAM [Concomitant]
     Active Substance: DIAZEPAM
     Indication: Conversion disorder
     Dosage: 15 MG (INTERVAL: 1 DAY)
     Route: 065
  18. METHYLPREDNISOLONE [Concomitant]
     Active Substance: METHYLPREDNISOLONE
     Indication: Encephalitis
     Dosage: UNK
     Route: 042
     Dates: start: 2021
  19. METHYLPREDNISOLONE [Concomitant]
     Active Substance: METHYLPREDNISOLONE
     Indication: Immunosuppressant drug therapy
     Dosage: UNK
     Route: 042
     Dates: start: 202104
  20. PROPRANOLOL HYDROCHLORIDE [Suspect]
     Active Substance: PROPRANOLOL HYDROCHLORIDE
     Indication: Seizure
     Dosage: 22.5 MG (INTERVAL: 1 DAY)
     Route: 065
  21. PROPRANOLOL HYDROCHLORIDE [Suspect]
     Active Substance: PROPRANOLOL HYDROCHLORIDE
     Indication: Conversion disorder
     Dosage: 30 MG (INTERVAL: 1 DAY)
     Route: 065
  22. PROPRANOLOL HYDROCHLORIDE [Suspect]
     Active Substance: PROPRANOLOL HYDROCHLORIDE
     Indication: Panic attack
     Dosage: 0.5 MG, BID (DOSE: 1 MILLIGRAM; INTERVAL: 1 DAY)
     Route: 065
  23. PROPRANOLOL HYDROCHLORIDE [Suspect]
     Active Substance: PROPRANOLOL HYDROCHLORIDE
     Dosage: 5 MG, TID (DOSE: 15 MILLIGRAM; INTERVAL: 1 DAY)
     Route: 065
     Dates: start: 2021
  24. RISPERIDONE [Concomitant]
     Active Substance: RISPERIDONE
     Indication: Conversion disorder
     Dosage: UNK (INTERVAL: 1 DAY)
     Route: 065
  25. RISPERIDONE [Concomitant]
     Active Substance: RISPERIDONE
     Dosage: 0.5 MG
     Route: 065
  26. RISPERIDONE [Concomitant]
     Active Substance: RISPERIDONE
     Dosage: UNK
     Route: 065
  27. LITHIUM [Suspect]
     Active Substance: LITHIUM
     Indication: Nervous system disorder prophylaxis
     Dosage: 375 MG, BID (750 MG, INTERVAL: 1 DAY)
     Route: 065
  28. LITHIUM [Suspect]
     Active Substance: LITHIUM
     Indication: Panic attack
     Dosage: 25 MG, BID (500MG, INTERVAL: 1 DAY)
     Route: 065
     Dates: start: 2021
  29. CLONIDINE HYDROCHLORIDE [Suspect]
     Active Substance: CLONIDINE HYDROCHLORIDE
     Indication: Panic attack
     Dosage: UNK (INTERVAL: 1 DAY)
     Route: 065
  30. CLONIDINE HYDROCHLORIDE [Suspect]
     Active Substance: CLONIDINE HYDROCHLORIDE
     Indication: Conversion disorder
     Dosage: 50 UG, QID
     Route: 065
  31. CLONIDINE HYDROCHLORIDE [Suspect]
     Active Substance: CLONIDINE HYDROCHLORIDE
     Indication: Seizure
     Dosage: 75 UG, QN (PRN)
     Route: 065
  32. CLONIDINE HYDROCHLORIDE [Suspect]
     Active Substance: CLONIDINE HYDROCHLORIDE
     Dosage: UNK
     Route: 065
  33. CLONIDINE HYDROCHLORIDE [Suspect]
     Active Substance: CLONIDINE HYDROCHLORIDE
     Dosage: 50 UG, TID
     Route: 065
  34. CLONIDINE HYDROCHLORIDE [Suspect]
     Active Substance: CLONIDINE HYDROCHLORIDE
     Dosage: UNK (INTERVAL: 1 DAY)
     Route: 065
  35. CLONIDINE HYDROCHLORIDE [Suspect]
     Active Substance: CLONIDINE HYDROCHLORIDE
     Dosage: UNK (INTERVAL: 1 DAY)
     Route: 065
     Dates: start: 2021
  36. CLONIDINE HYDROCHLORIDE [Suspect]
     Active Substance: CLONIDINE HYDROCHLORIDE
     Dosage: 25 UG, BID
     Route: 065
  37. RITUXIMAB [Concomitant]
     Active Substance: RITUXIMAB
     Indication: Immunosuppressant drug therapy
     Dosage: 1000 MG (INTERVAL: 1 DAY)
     Route: 065
     Dates: start: 2021
  38. RITUXIMAB [Concomitant]
     Active Substance: RITUXIMAB
     Indication: Encephalitis
     Dosage: 1000 MG (INTERVAL: 1 DAY)
     Route: 065
     Dates: start: 202104
  39. KETAMINE HYDROCHLORIDE [Concomitant]
     Active Substance: KETAMINE HYDROCHLORIDE
     Indication: Sedative therapy
     Dosage: 200 MG
     Route: 048
     Dates: start: 2021

REACTIONS (8)
  - Disease recurrence [Recovering/Resolving]
  - Urinary incontinence [Unknown]
  - Speech disorder [Recovered/Resolved]
  - Amnesia [Recovered/Resolved]
  - Anal incontinence [Unknown]
  - Drug ineffective [Unknown]
  - Off label use [Unknown]
  - Reading disorder [Recovered/Resolved]

NARRATIVE: CASE EVENT DATE: 20210101
